FAERS Safety Report 25348317 (Version 1)
Quarter: 2025Q2

REPORT INFORMATION
  Report Type: Spontaneous
  Country: PT (occurrence: PT)
  Receive Date: 20250522
  Receipt Date: 20250522
  Transmission Date: 20250717
  Serious: Yes (Hospitalization, Other)
  Sender: GLAXOSMITHKLINE
  Company Number: PT-GLAXOSMITHKLINE INC-PT2025EME060809

PATIENT

DRUGS (2)
  1. NUCALA [Suspect]
     Active Substance: MEPOLIZUMAB
     Indication: Asthma
     Dates: start: 2018, end: 202308
  2. NUCALA [Suspect]
     Active Substance: MEPOLIZUMAB
     Dates: start: 202503

REACTIONS (4)
  - Syncope [Unknown]
  - Throat tightness [Unknown]
  - Anaphylactic reaction [Unknown]
  - Pyrexia [Unknown]

NARRATIVE: CASE EVENT DATE: 20250507
